FAERS Safety Report 6428284-9 (Version None)
Quarter: 2009Q4

REPORT INFORMATION
  Report Type: 
  Country: None (occurrence: None)
  Receive Date: 20091105
  Receipt Date: 20091029
  Transmission Date: 20100525
  Serious: Yes (Other)
  Sender: FDA-Public Use
  Company Number: FR-JNJFOC-20081104271

PATIENT
  Age: 58 Year
  Sex: Female

DRUGS (5)
  1. REMICADE [Suspect]
     Dosage: FIFTH DOSE
     Route: 042
     Dates: start: 20080129, end: 20080701
  2. REMICADE [Suspect]
     Dosage: 4TH DOSE
     Route: 042
     Dates: start: 20080129, end: 20080701
  3. REMICADE [Suspect]
     Dosage: 3RD DOSE
     Route: 042
     Dates: start: 20080129, end: 20080701
  4. REMICADE [Suspect]
     Dosage: 2ND DOSE
     Route: 042
     Dates: start: 20080129, end: 20080701
  5. REMICADE [Suspect]
     Indication: RHEUMATOID ARTHRITIS
     Dosage: FIRST DOSE
     Route: 042
     Dates: start: 20080129, end: 20080701

REACTIONS (3)
  - CONJUNCTIVITIS [None]
  - EPISCLERITIS [None]
  - KERATITIS [None]
